FAERS Safety Report 9068789 (Version 1)
Quarter: 2013Q1

REPORT INFORMATION
  Report Type: Spontaneous
  Country: US (occurrence: None)
  Receive Date: 20130212
  Receipt Date: 20130212
  Transmission Date: 20140127
  Serious: No
  Sender: FDA-Public Use
  Company Number: None

PATIENT
  Sex: Female

DRUGS (2)
  1. RANIBIZUMAB [Suspect]
     Dosage: .05 ML PRN INTRAVITREAL
     Dates: start: 20121210
  2. BEVACIZUMAB [Concomitant]

REACTIONS (3)
  - Sudden visual loss [None]
  - Blindness unilateral [None]
  - Retinal detachment [None]
